FAERS Safety Report 7352396-9 (Version None)
Quarter: 2011Q1

REPORT INFORMATION
  Report Type: 
  Country: None (occurrence: None)
  Receive Date: 20110315
  Receipt Date: 20110307
  Transmission Date: 20110831
  Serious: Yes (Hospitalization)
  Sender: FDA-Public Use
  Company Number: DE-TEVA-270393GER

PATIENT
  Age: 74 Year
  Sex: Female

DRUGS (6)
  1. TOPIRAMATE [Suspect]
  2. PHENYTOIN [Suspect]
  3. VALPROIC ACID [Suspect]
  4. PHENYTOIN [Suspect]
     Route: 042
  5. PHENYTOIN [Suspect]
  6. LEVETIRACETAM [Suspect]

REACTIONS (6)
  - COMA [None]
  - TOXICITY TO VARIOUS AGENTS [None]
  - HEMIPLEGIA [None]
  - MYOCLONUS [None]
  - GRAND MAL CONVULSION [None]
  - PARESIS [None]
